FAERS Safety Report 12233152 (Version 2)
Quarter: 2016Q2

REPORT INFORMATION
  Report Type: Spontaneous
  Country: PT (occurrence: PT)
  Receive Date: 20160404
  Receipt Date: 20160426
  Transmission Date: 20160815
  Serious: Yes (Hospitalization, Other)
  Sender: FDA-Public Use
  Company Number: PT-ROCHE-1733783

PATIENT
  Age: 25 Year
  Sex: Male

DRUGS (9)
  1. TESTOSTERONE CYPIONATE. [Suspect]
     Active Substance: TESTOSTERONE CYPIONATE
     Indication: MUSCLE BUILDING THERAPY
     Route: 065
  2. SOMATROPIN [Suspect]
     Active Substance: SOMATROPIN
     Indication: MUSCLE BUILDING THERAPY
     Route: 065
  3. CLENBUTEROL [Interacting]
     Active Substance: CLENBUTEROL
     Indication: MUSCLE BUILDING THERAPY
     Route: 065
  4. STANOZOLOL [Suspect]
     Active Substance: STANOZOLOL
     Indication: MUSCLE BUILDING THERAPY
     Route: 065
  5. OXANDROLONE. [Suspect]
     Active Substance: OXANDROLONE
     Indication: MUSCLE BUILDING THERAPY
     Route: 065
  6. TRENBOLONE ACETATE [Suspect]
     Active Substance: TRENBOLONE ACETATE
     Indication: MUSCLE BUILDING THERAPY
     Route: 065
  7. TESTOSTERONE PROPIONATE. [Suspect]
     Active Substance: TESTOSTERONE PROPIONATE
     Indication: MUSCLE BUILDING THERAPY
     Route: 065
  8. MESTEROLONE [Suspect]
     Active Substance: MESTEROLONE
     Indication: MUSCLE BUILDING THERAPY
     Route: 065
  9. DROSTANOLONE [Suspect]
     Active Substance: DROMOSTANOLONE
     Indication: MUSCLE BUILDING THERAPY
     Route: 065

REACTIONS (3)
  - Myocardial infarction [Recovered/Resolved]
  - Drug abuse [Unknown]
  - Potentiating drug interaction [Unknown]
